FAERS Safety Report 4349603-3 (Version None)
Quarter: 2004Q1

REPORT INFORMATION
  Report Type: 
  Country: None (occurrence: None)
  Receive Date: 20040329
  Receipt Date: 20040212
  Transmission Date: 20041129
  Serious: No
  Sender: FDA-Public Use
  Company Number: USA031049857

PATIENT
  Age: 11 Year
  Sex: Male
  Weight: 23 kg

DRUGS (1)
  1. STRATTERA [Suspect]
     Indication: ATTENTION DEFICIT/HYPERACTIVITY DISORDER
     Dosage: 35 MG/IN THE EVENING
     Dates: start: 20030801

REACTIONS (8)
  - CRYING [None]
  - DEPRESSED MOOD [None]
  - DRUG INEFFECTIVE [None]
  - HEADACHE [None]
  - MOOD SWINGS [None]
  - PALLOR [None]
  - PERSONALITY CHANGE [None]
  - VOMITING [None]
